FAERS Safety Report 20261746 (Version 2)
Quarter: 2022Q1

REPORT INFORMATION
  Report Type: Spontaneous
  Country: US (occurrence: US)
  Receive Date: 20211231
  Receipt Date: 20220112
  Transmission Date: 20220424
  Serious: Yes (Other)
  Sender: FDA-Public Use
  Company Number: US-TEVA-2021-US-1993061

PATIENT
  Age: 12 Year
  Sex: Male

DRUGS (2)
  1. GABAPENTIN [Suspect]
     Active Substance: GABAPENTIN
     Indication: Pain in extremity
     Route: 065
  2. TIAGABINE [Suspect]
     Active Substance: TIAGABINE
     Indication: Pain in extremity
     Route: 065

REACTIONS (3)
  - Sedation [Unknown]
  - Abnormal behaviour [Unknown]
  - Drug ineffective [Unknown]
